FAERS Safety Report 8002964-6 (Version None)
Quarter: 2011Q4

REPORT INFORMATION
  Report Type: 
  Country: None (occurrence: None)
  Receive Date: 20111222
  Receipt Date: 20110527
  Transmission Date: 20120403
  Serious: No
  Sender: FDA-Public Use
  Company Number: US-GLAXOSMITHKLINE-A0929517A

PATIENT
  Age: 37 Year
  Sex: Female

DRUGS (4)
  1. DULERA ORAL INHALATION [Concomitant]
  2. AVODART [Suspect]
     Indication: PRODUCT USED FOR UNKNOWN INDICATION
  3. SINGULAIR [Concomitant]
  4. CLARITIN [Concomitant]

REACTIONS (6)
  - DRUG ADMINISTRATION ERROR [None]
  - ACCIDENTAL EXPOSURE [None]
  - EYE PAIN [None]
  - OCULAR HYPERAEMIA [None]
  - EYE INFLAMMATION [None]
  - FOREIGN BODY SENSATION IN EYES [None]
